FAERS Safety Report 11338187 (Version 1)
Quarter: 2015Q3

REPORT INFORMATION
  Report Type: Spontaneous
  Country: US (occurrence: US)
  Receive Date: 20150803
  Receipt Date: 20150803
  Transmission Date: 20151125
  Serious: No
  Sender: FDA-Public Use
  Company Number: US-ELI_LILLY_AND_COMPANY-US200705007425

PATIENT
  Sex: Male

DRUGS (5)
  1. STRATTERA [Suspect]
     Active Substance: ATOMOXETINE HYDROCHLORIDE
     Dosage: 100 MG, UNK
     Route: 048
     Dates: end: 200704
  2. WELLBUTRIN [Concomitant]
     Active Substance: BUPROPION HYDROCHLORIDE
  3. ZOLOFT [Concomitant]
     Active Substance: SERTRALINE HYDROCHLORIDE
  4. STRATTERA [Suspect]
     Active Substance: ATOMOXETINE HYDROCHLORIDE
     Indication: ATTENTION DEFICIT/HYPERACTIVITY DISORDER
     Dosage: 60 MG, UNK
     Route: 048
  5. STRATTERA [Suspect]
     Active Substance: ATOMOXETINE HYDROCHLORIDE
     Dosage: 60 MG, UNK
     Route: 048
     Dates: start: 200704

REACTIONS (7)
  - Haemorrhage [Recovered/Resolved]
  - Urine analysis abnormal [Recovering/Resolving]
  - Erythema [Recovering/Resolving]
  - Heart rate increased [Recovered/Resolved]
  - Groin pain [Recovering/Resolving]
  - Blood test abnormal [Recovering/Resolving]
  - Frustration [Not Recovered/Not Resolved]
